FAERS Safety Report 13069438 (Version 4)
Quarter: 2019Q3

REPORT INFORMATION
  Report Type: Report from Study
  Country: US (occurrence: US)
  Receive Date: 20161228
  Receipt Date: 20190806
  Transmission Date: 20191004
  Serious: Yes (Hospitalization, Other)
  Sender: FDA-Public Use
  Company Number: US-EISAI MEDICAL RESEARCH-EC-2016-016477

PATIENT
  Age: 71 Year
  Sex: Female
  Weight: 62.59 kg

DRUGS (17)
  1. LENVIMA [Suspect]
     Active Substance: LENVATINIB
     Route: 048
     Dates: start: 2016, end: 2016
  2. CALCIUM [Concomitant]
     Active Substance: CALCIUM
  3. IRON [Concomitant]
     Active Substance: IRON
  4. LENVIMA [Suspect]
     Active Substance: LENVATINIB
     Indication: THYROID CANCER
     Route: 048
     Dates: start: 20160419, end: 20160616
  5. CARVEDILOL. [Concomitant]
     Active Substance: CARVEDILOL
  6. MULTIVITAMINS [Concomitant]
     Active Substance: VITAMINS
  7. TYLENOL [Concomitant]
     Active Substance: ACETAMINOPHEN
  8. OMEPRAZOLE. [Concomitant]
     Active Substance: OMEPRAZOLE
  9. ROBITUSSIN (GUAIFENESIN) [Concomitant]
     Active Substance: GUAIFENESIN
  10. OXYCODONE [Concomitant]
     Active Substance: OXYCODONE
  11. BACLOFEN. [Concomitant]
     Active Substance: BACLOFEN
  12. FOLIC ACID. [Concomitant]
     Active Substance: FOLIC ACID
  13. VITAMIN C [Concomitant]
     Active Substance: ASCORBIC ACID
  14. LENVIMA [Suspect]
     Active Substance: LENVATINIB
     Route: 048
     Dates: start: 201806
  15. LENVIMA [Suspect]
     Active Substance: LENVATINIB
     Route: 048
     Dates: end: 201706
  16. LENVIMA [Suspect]
     Active Substance: LENVATINIB
     Route: 048
     Dates: end: 201907
  17. AMLODIPINE BESYLATE. [Concomitant]
     Active Substance: AMLODIPINE BESYLATE

REACTIONS (28)
  - Swelling [Not Recovered/Not Resolved]
  - Back pain [Unknown]
  - Rash [Not Recovered/Not Resolved]
  - Depression [Unknown]
  - Protein total decreased [Unknown]
  - Pain in extremity [Not Recovered/Not Resolved]
  - Malignant neoplasm progression [Unknown]
  - Malaise [Unknown]
  - Blood pressure increased [Unknown]
  - Impaired healing [Not Recovered/Not Resolved]
  - Lymphadenopathy [Unknown]
  - Dry skin [Not Recovered/Not Resolved]
  - Decreased appetite [Unknown]
  - Headache [Not Recovered/Not Resolved]
  - Diarrhoea [Recovered/Resolved]
  - Fatigue [Unknown]
  - Congestive cardiomyopathy [Unknown]
  - Constipation [Unknown]
  - Musculoskeletal pain [Not Recovered/Not Resolved]
  - Neck pain [Not Recovered/Not Resolved]
  - Arthralgia [Unknown]
  - Cardiac failure congestive [Recovering/Resolving]
  - Blister [Not Recovered/Not Resolved]
  - Blood calcium decreased [Recovering/Resolving]
  - Vision blurred [Unknown]
  - Muscle spasms [Not Recovered/Not Resolved]
  - Cardiac murmur [Unknown]
  - Epistaxis [Unknown]

NARRATIVE: CASE EVENT DATE: 2016
